FAERS Safety Report 15799549 (Version 2)
Quarter: 2019Q1

REPORT INFORMATION
  Report Type: Spontaneous
  Country: GB (occurrence: GB)
  Receive Date: 20190108
  Receipt Date: 20190122
  Transmission Date: 20190417
  Serious: Yes (Hospitalization)
  Sender: FDA-Public Use
  Company Number: GB-ACCORD-099584

PATIENT
  Age: 42 Year
  Sex: Male

DRUGS (2)
  1. CLOZAPINE. [Suspect]
     Active Substance: CLOZAPINE
     Indication: SCHIZOPHRENIA
  2. COCAINE [Suspect]
     Active Substance: COCAINE

REACTIONS (5)
  - Intentional product misuse [Unknown]
  - Drug withdrawal syndrome [Unknown]
  - Treatment noncompliance [Unknown]
  - Dyskinesia [Recovering/Resolving]
  - Salivary hypersecretion [Recovered/Resolved]
